FAERS Safety Report 25741646 (Version 1)
Quarter: 2025Q3

REPORT INFORMATION
  Report Type: Spontaneous
  Country: US (occurrence: US)
  Receive Date: 20250829
  Receipt Date: 20250829
  Transmission Date: 20251021
  Serious: Yes (Other)
  Sender: BRISTOL-MYERS SQUIBB COMPANY
  Company Number: US-BRISTOL-MYERS SQUIBB COMPANY-2025-119858

PATIENT
  Age: 57 Year
  Sex: Female

DRUGS (1)
  1. POMALYST [Suspect]
     Active Substance: POMALIDOMIDE
     Indication: Plasma cell leukaemia in remission
     Dosage: QDX21D, 7D OFF
     Route: 048
     Dates: start: 20240814

REACTIONS (2)
  - Malignant neoplasm progression [Unknown]
  - Off label use [Unknown]
